FAERS Safety Report 10641665 (Version 2)
Quarter: 2014Q4

REPORT INFORMATION
  Report Type: Report from Study
  Country: BR (occurrence: BR)
  Receive Date: 20141209
  Receipt Date: 20141209
  Transmission Date: 20150529
  Serious: Yes (Hospitalization)
  Sender: FDA-Public Use
  Company Number: BR-ABBVIE-14P-020-1260532-00

PATIENT
  Age: 41 Year
  Sex: Female
  Weight: 42 kg

DRUGS (5)
  1. CENTROCAL [Concomitant]
     Indication: BONE DISORDER
     Route: 048
     Dates: start: 2012
  2. TECNOMET [Concomitant]
     Indication: BLOOD DISORDER
     Dosage: EVERY MONDAYS
     Route: 048
     Dates: start: 2012
  3. FOLIC ACID. [Concomitant]
     Active Substance: FOLIC ACID
     Indication: VITAMIN SUPPLEMENTATION
     Dosage: EVERY MONDAYS
     Route: 048
     Dates: start: 2012
  4. HUMIRA [Suspect]
     Active Substance: ADALIMUMAB
     Indication: RHEUMATOID ARTHRITIS
     Route: 058
     Dates: start: 20140601
  5. REUQUINOL [Concomitant]
     Active Substance: HYDROXYCHLOROQUINE SULFATE
     Indication: BONE DISORDER
     Route: 048
     Dates: start: 2012

REACTIONS (5)
  - Pain in extremity [Not Recovered/Not Resolved]
  - Back pain [Not Recovered/Not Resolved]
  - Malaise [Unknown]
  - Vomiting [Recovered/Resolved]
  - Headache [Recovered/Resolved]

NARRATIVE: CASE EVENT DATE: 201406
